FAERS Safety Report 16733035 (Version 3)
Quarter: 2019Q3

REPORT INFORMATION
  Report Type: Report from Study
  Country: CA (occurrence: CA)
  Receive Date: 20190823
  Receipt Date: 20190910
  Transmission Date: 20191005
  Serious: Yes (Other)
  Sender: FDA-Public Use
  Company Number: CA-BIOGEN-2019BI00757262

PATIENT
  Age: 43 Year
  Sex: Female

DRUGS (2)
  1. TYSABRI [Suspect]
     Active Substance: NATALIZUMAB
     Indication: MULTIPLE SCLEROSIS
     Dosage: INFUSED FOR OVER 1 HRS
     Route: 042
     Dates: start: 20100222
  2. TYSABRI [Suspect]
     Active Substance: NATALIZUMAB
     Dosage: INFUSED FOR OVER 1 HRS
     Route: 042

REACTIONS (5)
  - Multiple sclerosis relapse [Not Recovered/Not Resolved]
  - Myelitis [Unknown]
  - Tonsillitis [Not Recovered/Not Resolved]
  - Stress [Recovered/Resolved]
  - Tongue fungal infection [Not Recovered/Not Resolved]

NARRATIVE: CASE EVENT DATE: 20190617
